FAERS Safety Report 20162117 (Version 1)
Quarter: 2021Q4

REPORT INFORMATION
  Report Type: Report from Study
  Country: US (occurrence: US)
  Receive Date: 20211208
  Receipt Date: 20211208
  Transmission Date: 20220303
  Serious: Yes (Other)
  Sender: FDA-Public Use
  Company Number: US-LUNDBECK-DKLU3041879

PATIENT
  Age: 25 Year
  Sex: Male

DRUGS (1)
  1. VYEPTI [Suspect]
     Active Substance: EPTINEZUMAB-JJMR
     Indication: Migraine
     Route: 041
     Dates: start: 20210924

REACTIONS (3)
  - Burning sensation [Unknown]
  - Paraesthesia [Unknown]
  - Pruritus [Unknown]

NARRATIVE: CASE EVENT DATE: 20210924
